FAERS Safety Report 7455831-0 (Version None)
Quarter: 2011Q2

REPORT INFORMATION
  Report Type: 
  Country: None (occurrence: None)
  Receive Date: 20110503
  Receipt Date: 20110427
  Transmission Date: 20111010
  Serious: Yes (Life-Threatening)
  Sender: FDA-Public Use
  Company Number: PHHO2011US06016

PATIENT
  Sex: Female

DRUGS (7)
  1. COMPAZINE [Concomitant]
  2. AMLODIPINE [Concomitant]
  3. CELEXA [Concomitant]
  4. LOMOTIL [Concomitant]
  5. AFINITOR [Suspect]
     Indication: COLORECTAL CANCER METASTATIC
     Dosage: 10 MG, QD
     Route: 048
     Dates: start: 20110318, end: 20110404
  6. XANAX [Concomitant]
  7. TIVOZANIB [Suspect]
     Indication: COLORECTAL CANCER METASTATIC
     Dosage: 1 MG, QD
     Route: 048
     Dates: start: 20110318, end: 20110404

REACTIONS (1)
  - PLATELET COUNT DECREASED [None]
